FAERS Safety Report 5121895-2 (Version None)
Quarter: 2006Q4

REPORT INFORMATION
  Report Type: 
  Country: None (occurrence: None)
  Receive Date: 20061006
  Receipt Date: 20060927
  Transmission Date: 20070319
  Serious: Yes (Other)
  Sender: FDA-Public Use
  Company Number: PT-JNJFOC-20061000075

PATIENT
  Age: 35 Year
  Sex: Female

DRUGS (5)
  1. REMICADE [Suspect]
     Indication: COLITIS
     Route: 042
  2. AZATHIOPRINE [Concomitant]
     Dosage: ^DOSE 1.0-2.4 MG/KG/DAY^
  3. AZATHIOPRINE [Concomitant]
     Dosage: ^DOSE 1.0-2.4 MG/KG/DAY^
  4. MYCOPHENOLATE MOFETIL [Concomitant]
  5. CORTICOIDS [Concomitant]

REACTIONS (1)
  - B-CELL LYMPHOMA [None]
